FAERS Safety Report 6832952-4 (Version None)
Quarter: 2010Q3

REPORT INFORMATION
  Report Type: 
  Country: None (occurrence: None)
  Receive Date: 20100712
  Receipt Date: 20070321
  Transmission Date: 20110219
  Serious: No
  Sender: FDA-Public Use
  Company Number: US-PFIZER INC-2007024735

PATIENT
  Sex: Male
  Weight: 95.71 kg

DRUGS (3)
  1. CHANTIX [Suspect]
     Indication: EX-TOBACCO USER
     Dates: start: 20061201
  2. ALL OTHER THERAPEUTIC PRODUCTS [Concomitant]
  3. PRANDIN [Concomitant]

REACTIONS (2)
  - MOOD SWINGS [None]
  - SLEEP DISORDER [None]
